FAERS Safety Report 6456648-6 (Version None)
Quarter: 2009Q4

REPORT INFORMATION
  Report Type: 
  Country: None (occurrence: None)
  Receive Date: 20091124
  Receipt Date: 20091124
  Transmission Date: 20100525
  Serious: Yes (Death)
  Sender: FDA-Public Use
  Company Number: None

PATIENT
  Sex: Male

DRUGS (10)
  1. REVLIMID [Suspect]
     Indication: MULTIPLE MYELOMA
     Dosage: 25MG DAILY21D/28D ORALLY
     Route: 048
  2. REVLIMID [Concomitant]
  3. DIGOXIN [Concomitant]
  4. FLOMAX [Concomitant]
  5. VICODIN [Concomitant]
  6. NITROGLYDERIN SL [Concomitant]
  7. LISINOPRIL [Concomitant]
  8. ASPIRIN [Concomitant]
  9. ALBUTEROL INHALATION SOLN [Concomitant]
  10. METOPROL [Concomitant]

REACTIONS (1)
  - DEATH [None]
